FAERS Safety Report 6923178-4 (Version None)
Quarter: 2010Q3

REPORT INFORMATION
  Report Type: 
  Country: None (occurrence: None)
  Receive Date: 20100813
  Receipt Date: 20100806
  Transmission Date: 20110219
  Serious: Yes (Hospitalization)
  Sender: FDA-Public Use
  Company Number: JP-ROCHE-708460

PATIENT
  Sex: Male
  Weight: 62 kg

DRUGS (5)
  1. PEGASYS [Suspect]
     Route: 058
     Dates: start: 20090918, end: 20100227
  2. URSO 250 [Concomitant]
     Dosage: FORM: PERORAL AGENT.
     Route: 048
     Dates: start: 20090627, end: 20091211
  3. SEREVENT [Concomitant]
     Dosage: NOTE: DOSAGE IS UNCERTAIN.
     Route: 065
  4. FLUTIDE [Concomitant]
     Dosage: NOTE: DOSAGE IS UNCERTAIN.
     Route: 065
  5. LAC-B [Concomitant]
     Route: 065
     Dates: start: 20100213, end: 20100320

REACTIONS (1)
  - GASTROENTERITIS EOSINOPHILIC [None]
